FAERS Safety Report 8852667 (Version 1)
Quarter: 2012Q4

REPORT INFORMATION
  Report Type: 
  Country: FR (occurrence: FR)
  Receive Date: 20121022
  Receipt Date: 20121022
  Transmission Date: 20130627
  Serious: Yes (Hospitalization)
  Sender: FDA-Public Use
  Company Number: FR-VERTEX PHARMACEUTICAL INC.-2012-023250

PATIENT
  Age: 39 Year
  Sex: Male
  Weight: 78 kg

DRUGS (6)
  1. INCIVO [Suspect]
     Indication: HEPATITIS C
     Dosage: Dosage Form: Tablet
     Route: 048
     Dates: start: 20120210, end: 20120504
  2. RIBAVIRINE [Concomitant]
     Indication: HEPATITIS C
     Dosage: Dosage Form: Unspecified
     Dates: start: 20120210
  3. PEGASYS [Concomitant]
     Indication: HEPATITIS C
     Dosage: Dosage Form: Unspecified
     Dates: start: 20120210
  4. APROVEL [Concomitant]
     Indication: PROPHYLAXIS
     Dosage: Dosage Form: Unspecified
     Dates: start: 20120323
  5. EFFERALGAN [Concomitant]
     Indication: INFLUENZA LIKE ILLNESS
     Dosage: Dosage Form: Unspecified
     Dates: start: 20120504
  6. ALPRAZOLAM [Concomitant]
     Dosage: Dosage Form: Unspecified
     Dates: start: 20120504

REACTIONS (1)
  - Cellulitis [Recovered/Resolved]
